APPROVED DRUG PRODUCT: METHADONE HYDROCHLORIDE
Active Ingredient: METHADONE HYDROCHLORIDE
Strength: 10MG
Dosage Form/Route: TABLET;ORAL
Application: A040517 | Product #002 | TE Code: AA
Applicant: SPECGX LLC
Approved: Apr 27, 2004 | RLD: No | RS: Yes | Type: RX